FAERS Safety Report 9363657 (Version 1)
Quarter: 2013Q2

REPORT INFORMATION
  Report Type: Report from Study
  Country: US (occurrence: US)
  Receive Date: 20130624
  Receipt Date: 20130624
  Transmission Date: 20140414
  Serious: Yes (Other)
  Sender: FDA-Public Use
  Company Number: US-JNJFOC-20130605463

PATIENT
  Sex: Female
  Weight: 73.94 kg

DRUGS (5)
  1. XARELTO [Suspect]
     Indication: CEREBROVASCULAR ACCIDENT PROPHYLAXIS
     Route: 048
  2. XARELTO [Suspect]
     Indication: ATRIAL FIBRILLATION
     Route: 048
  3. EXTRA STRENGTH TYLENOL [Suspect]
     Indication: MIGRAINE
     Route: 048
     Dates: end: 201305
  4. EXTRA STRENGTH TYLENOL [Suspect]
     Indication: HEADACHE
     Route: 048
     Dates: end: 201305
  5. STEROIDS NOS [Suspect]
     Indication: MULTIPLE SCLEROSIS
     Route: 050
     Dates: start: 1999

REACTIONS (4)
  - Atrial fibrillation [Not Recovered/Not Resolved]
  - Multiple sclerosis [Not Recovered/Not Resolved]
  - Body height decreased [Recovered/Resolved]
  - Drug ineffective [Unknown]
